FAERS Safety Report 10023148 (Version 1)
Quarter: 2014Q1

REPORT INFORMATION
  Report Type: Report from Study
  Country: DE (occurrence: DE)
  Receive Date: 20140320
  Receipt Date: 20140320
  Transmission Date: 20141002
  Serious: Yes (Other)
  Sender: FDA-Public Use
  Company Number: DE-AMGEN-DEUCT2014018895

PATIENT
  Age: 58 Year
  Sex: Female
  Weight: 87 kg

DRUGS (2)
  1. ETANERCEPT [Suspect]
     Indication: PSORIATIC ARTHROPATHY
     Dosage: 50 MG, 2 TIMES/WK
     Route: 058
     Dates: start: 20100302, end: 20100409
  2. DERMATOP [Concomitant]
     Dosage: UNK
     Route: 061
     Dates: start: 200912

REACTIONS (2)
  - Injection site extravasation [Recovered/Resolved]
  - Injection site erythema [Recovered/Resolved]
